FAERS Safety Report 21085431 (Version 2)
Quarter: 2022Q4

REPORT INFORMATION
  Report Type: Spontaneous
  Country: FR (occurrence: FR)
  Receive Date: 20220714
  Receipt Date: 20221031
  Transmission Date: 20230113
  Serious: Yes (Death, Life-Threatening, Hospitalization, Other)
  Sender: FDA-Public Use
  Company Number: FR-MICRO LABS LIMITED-ML2022-03204

PATIENT
  Age: 96 Year
  Sex: Female

DRUGS (8)
  1. AMOXICILLIN\CLAVULANIC ACID [Suspect]
     Active Substance: AMOXICILLIN\CLAVULANIC ACID
     Indication: Acute pulmonary oedema
  2. AMOXICILLIN\CLAVULANIC ACID [Suspect]
     Active Substance: AMOXICILLIN\CLAVULANIC ACID
     Indication: Pneumonia
  3. ENOXAPARIN [Suspect]
     Active Substance: ENOXAPARIN
     Indication: Acute pulmonary oedema
  4. ENOXAPARIN [Suspect]
     Active Substance: ENOXAPARIN
     Indication: Pneumonia
  5. FUROSEMIDE [Concomitant]
     Active Substance: FUROSEMIDE
     Indication: Acute pulmonary oedema
  6. FUROSEMIDE [Concomitant]
     Active Substance: FUROSEMIDE
     Indication: Pneumonia
  7. ISOSORBIDE DINITRATE [Concomitant]
     Active Substance: ISOSORBIDE DINITRATE
     Indication: Acute pulmonary oedema
  8. ISOSORBIDE DINITRATE [Concomitant]
     Active Substance: ISOSORBIDE DINITRATE
     Indication: Pneumonia

REACTIONS (7)
  - Generalised bullous fixed drug eruption [Fatal]
  - Septic shock [Fatal]
  - Cardiac failure [Fatal]
  - Renal failure [Fatal]
  - Multiple organ dysfunction syndrome [Fatal]
  - Contraindicated product administered [Fatal]
  - Product prescribing error [Fatal]
